FAERS Safety Report 9293813 (Version 2)
Quarter: 2013Q4

REPORT INFORMATION
  Report Type: Spontaneous
  Country: GB (occurrence: GB)
  Receive Date: 20130516
  Receipt Date: 20131015
  Transmission Date: 20140711
  Serious: Yes (Hospitalization)
  Sender: FDA-Public Use
  Company Number: PHHY2013GB047762

PATIENT
  Age: 57 Year
  Sex: Male

DRUGS (8)
  1. AMOXICILLIN [Suspect]
     Dosage: 2 G, QID
     Route: 042
     Dates: start: 20130426, end: 20130430
  2. AUGMENTIN [Suspect]
     Indication: INFECTION
     Dosage: 1.2 G, TID
     Route: 042
     Dates: start: 20130419, end: 20130426
  3. PARACETAMOL [Concomitant]
  4. CODEINE PHOSPHATE [Concomitant]
  5. DALTEPARIN SODIUM [Concomitant]
  6. SIMVASTATIN [Concomitant]
  7. SENNA [Concomitant]
  8. LAXIDO [Concomitant]

REACTIONS (1)
  - Platelet count increased [Recovering/Resolving]
